FAERS Safety Report 7508549-X (Version None)
Quarter: 2011Q2

REPORT INFORMATION
  Report Type: 
  Country: None (occurrence: None)
  Receive Date: 20110519
  Receipt Date: 20110505
  Transmission Date: 20111010
  Serious: Yes (Other)
  Sender: FDA-Public Use
  Company Number: 2008AP003001

PATIENT
  Age: 28 Year
  Sex: Female

DRUGS (3)
  1. FLUOXETINE [Suspect]
     Indication: PRODUCT USED FOR UNKNOWN INDICATION
  2. SERTRALINE HYDROCHLORIDE [Suspect]
     Indication: DEPRESSION
     Dosage: 50 MG;QD, PO
     Route: 048
     Dates: start: 20080909, end: 20081003
  3. CITALOPRAM HYDROBROMIDE [Suspect]
     Indication: PRODUCT USED FOR UNKNOWN INDICATION

REACTIONS (7)
  - JOINT SWELLING [None]
  - PRURITUS [None]
  - ASTHMA [None]
  - CONDITION AGGRAVATED [None]
  - RASH [None]
  - URTICARIA [None]
  - HYPERSENSITIVITY [None]
